FAERS Safety Report 17420663 (Version 1)
Quarter: 2020Q1

REPORT INFORMATION
  Report Type: Spontaneous
  Country: US (occurrence: US)
  Receive Date: 20200214
  Receipt Date: 20200214
  Transmission Date: 20200409
  Serious: No
  Sender: FDA-Public Use
  Company Number: US-PFIZER INC-2020063470

PATIENT
  Age: 57 Year
  Sex: Male
  Weight: 136 kg

DRUGS (8)
  1. EUCRISA [Suspect]
     Active Substance: CRISABOROLE
     Indication: RASH
     Dosage: UNK, 2X/DAY
  2. PERCOCET [Concomitant]
     Active Substance: ACETAMINOPHEN\OXYCODONE HYDROCHLORIDE
     Indication: PAIN
     Dosage: 1 DF, 3X/DAY (1 TABLET EVERY 8 HOURS/ OXYCODONE HYDROCHLORIDE-5 MG/ PARACETAMOL-325 MG)
     Route: 048
  3. TRANXENE [Concomitant]
     Active Substance: CLORAZEPATE DIPOTASSIUM
     Indication: ANXIETY
     Dosage: 7.5 MG, 1X/DAY
     Route: 048
  4. DIOVAN [Concomitant]
     Active Substance: VALSARTAN
     Indication: HYPERTENSION
     Dosage: 1 DF, 1X/DAY; (320/25)
     Route: 048
  5. VRAYLAR [Concomitant]
     Active Substance: CARIPRAZINE
     Indication: OBSESSIVE-COMPULSIVE DISORDER
     Dosage: 3 MG, 1X/DAY
     Route: 048
  6. GABAPENTIN. [Concomitant]
     Active Substance: GABAPENTIN
     Indication: PAIN IN EXTREMITY
     Dosage: 600 MG, 3X/DAY
     Route: 048
  7. SKELAXIN [METAXALONE] [Concomitant]
     Indication: PAIN
     Dosage: 800 MG, 3X/DAY
     Route: 048
  8. CELEXA [CELECOXIB] [Concomitant]
     Active Substance: CELECOXIB
     Indication: DEPRESSION
     Dosage: 40 MG, DAILY
     Route: 048

REACTIONS (1)
  - Rash papular [Unknown]
